FAERS Safety Report 12684439 (Version 1)
Quarter: 2016Q3

REPORT INFORMATION
  Report Type: Spontaneous
  Country: US (occurrence: US)
  Receive Date: 20160825
  Receipt Date: 20160825
  Transmission Date: 20161109
  Serious: Yes (Other)
  Sender: FDA-Public Use
  Company Number: US-GLAXOSMITHKLINE-US2016122884

PATIENT
  Sex: Female

DRUGS (1)
  1. THERAFLU MULTI SYMPTOM SEVERE COLD [Suspect]
     Active Substance: ACETAMINOPHEN\DEXTROMETHORPHAN HYDROBROMIDE\PHENYLEPHRINE HYDROCHLORIDE
     Indication: INFLUENZA
     Dosage: UNK
     Dates: start: 20160817

REACTIONS (5)
  - Hallucination, visual [Unknown]
  - Insomnia [Unknown]
  - Hospitalisation [Recovered/Resolved]
  - Hallucination, auditory [Unknown]
  - Poor quality sleep [Unknown]
